FAERS Safety Report 21448512 (Version 3)
Quarter: 2022Q4

REPORT INFORMATION
  Report Type: Report from Study
  Country: US (occurrence: US)
  Receive Date: 20221013
  Receipt Date: 20221115
  Transmission Date: 20230112
  Serious: Yes (Other)
  Sender: FDA-Public Use
  Company Number: US-BRISTOL-MYERS SQUIBB COMPANY-2022-116459

PATIENT
  Age: 72 Year
  Sex: Male

DRUGS (3)
  1. OPDIVO [Suspect]
     Active Substance: NIVOLUMAB
     Indication: Renal cell carcinoma
     Route: 065
     Dates: start: 202203, end: 202206
  2. OPDIVO [Suspect]
     Active Substance: NIVOLUMAB
     Dosage: SINGLE THERAPY EVERY 2 WEEKS UNTIL ABOUT 5 WEEKS AGO
     Route: 065
  3. YERVOY [Suspect]
     Active Substance: IPILIMUMAB
     Indication: Renal cell carcinoma
     Route: 065
     Dates: start: 202203, end: 202206

REACTIONS (1)
  - Immune-mediated enterocolitis [Unknown]
